FAERS Safety Report 20280005 (Version 1)
Quarter: 2022Q1

REPORT INFORMATION
  Report Type: Report from Study
  Country: US (occurrence: None)
  Receive Date: 20220103
  Receipt Date: 20220103
  Transmission Date: 20220423
  Serious: Yes (Death)
  Sender: FDA-Public Use
  Company Number: 2021A909370

PATIENT
  Age: 23607 Day
  Sex: Female

DRUGS (2)
  1. TAGRISSO [Suspect]
     Active Substance: OSIMERTINIB
     Indication: Pulmonary embolism
     Route: 048
     Dates: start: 202008
  2. TAGRISSO [Suspect]
     Active Substance: OSIMERTINIB
     Indication: Iron deficiency anaemia
     Route: 048
     Dates: start: 202008

REACTIONS (1)
  - Death [Fatal]

NARRATIVE: CASE EVENT DATE: 20211220
